FAERS Safety Report 7397263-X (Version None)
Quarter: 2011Q2

REPORT INFORMATION
  Report Type: 
  Country: None (occurrence: None)
  Receive Date: 20110406
  Receipt Date: 20110328
  Transmission Date: 20111010
  Serious: Yes (Hospitalization)
  Sender: FDA-Public Use
  Company Number: FR-ASTRAZENECA-2011SE17216

PATIENT
  Age: 84 Year
  Sex: Male
  Weight: 69.9 kg

DRUGS (14)
  1. TAHOR [Suspect]
     Indication: HYPERCHOLESTEROLAEMIA
     Route: 048
     Dates: end: 20110210
  2. ENERGIE POWER [Concomitant]
  3. NEXIUM [Suspect]
     Indication: PROPHYLAXIS AGAINST GASTROINTESTINAL ULCER
     Route: 048
     Dates: end: 20110210
  4. TAMSULOSINE [Suspect]
     Indication: URINARY RETENTION
     Route: 048
     Dates: end: 20110210
  5. ACUPAN [Concomitant]
  6. PARACETAMOL [Suspect]
     Route: 048
     Dates: end: 20110210
  7. TRAMADOL [Suspect]
     Route: 048
     Dates: end: 20110210
  8. CETORNAN [Suspect]
     Indication: ENTERAL NUTRITION
     Route: 048
     Dates: end: 20110210
  9. ATENOLOL [Concomitant]
  10. KARDEGIC [Concomitant]
  11. ECONAZOLE NITRATE [Concomitant]
  12. NEXIUM [Suspect]
     Route: 048
     Dates: start: 20110201
  13. FLAGYL [Concomitant]
  14. BACTRIM [Concomitant]

REACTIONS (2)
  - CYTOLYTIC HEPATITIS [None]
  - CHOLESTASIS [None]
